FAERS Safety Report 11176966 (Version 1)
Quarter: 2015Q2

REPORT INFORMATION
  Report Type: Spontaneous
  Country: US (occurrence: None)
  Receive Date: 20150609
  Receipt Date: 20150609
  Transmission Date: 20150821
  Serious: Yes (Hospitalization)
  Sender: FDA-Public Use
  Company Number: None

PATIENT
  Age: 56 Year
  Sex: Male
  Weight: 68.6 kg

DRUGS (1)
  1. CLOZARIL [Suspect]
     Active Substance: CLOZAPINE
     Indication: SCHIZOAFFECTIVE DISORDER
     Route: 048
     Dates: start: 20050804, end: 20150523

REACTIONS (5)
  - Suicidal ideation [None]
  - Hallucination [None]
  - Agranulocytosis [None]
  - Neutropenia [None]
  - Depression [None]

NARRATIVE: CASE EVENT DATE: 20150521
